FAERS Safety Report 10728912 (Version 1)
Quarter: 2015Q1

REPORT INFORMATION
  Report Type: Spontaneous
  Country: US (occurrence: US)
  Receive Date: 20150122
  Receipt Date: 20150122
  Transmission Date: 20150721
  Serious: Yes (Other)
  Sender: FDA-Public Use
  Company Number: US-CELGENE-USA-2015011719

PATIENT
  Age: 61 Year
  Sex: Female

DRUGS (22)
  1. MONTELUKAST [Concomitant]
     Active Substance: MONTELUKAST SODIUM
     Indication: ASTHMA
     Route: 065
  2. OTEZLA [Suspect]
     Active Substance: APREMILAST
     Indication: PSORIATIC ARTHROPATHY
     Dosage: 60 MILLIGRAM
     Route: 048
     Dates: start: 20141226
  3. NABUMETONE. [Concomitant]
     Active Substance: NABUMETONE
     Indication: ANTIINFLAMMATORY THERAPY
     Route: 065
  4. ADVAIR HFA [Concomitant]
     Active Substance: FLUTICASONE PROPIONATE\SALMETEROL XINAFOATE
     Indication: ASTHMA
     Dosage: 30 MILLIGRAM
     Route: 065
  5. AZELASTINE [Concomitant]
     Active Substance: AZELASTINE
     Indication: NASAL CONGESTION
     Dosage: 30 MILLIGRAM
     Route: 065
  6. CLARITIN [Concomitant]
     Active Substance: LORATADINE
     Indication: MULTIPLE ALLERGIES
     Dosage: AS NEEDED
     Route: 065
  7. PREDNISONE. [Concomitant]
     Active Substance: PREDNISONE
     Indication: PRODUCT USED FOR UNKNOWN INDICATION
     Dosage: 300 MILLIGRAM
     Route: 065
  8. OXYBUTYNIN [Concomitant]
     Active Substance: OXYBUTYNIN
     Indication: BLADDER DISORDER
     Route: 065
  9. CENTRUM MULTIVITAMIN [Concomitant]
     Indication: PRODUCT USED FOR UNKNOWN INDICATION
     Dosage: 500 MILLIGRAM
     Route: 065
  10. OXYCODONE [Concomitant]
     Active Substance: OXYCODONE
     Indication: BREAKTHROUGH PAIN
     Route: 065
  11. OMEPRAZOLE. [Concomitant]
     Active Substance: OMEPRAZOLE
     Indication: GASTROOESOPHAGEAL REFLUX DISEASE
     Route: 065
  12. VENTOLIN [Concomitant]
     Active Substance: ALBUTEROL SULFATE
     Indication: RESPIRATORY DISORDER
     Dosage: AS NEEDED
     Route: 065
  13. DRY EYES [Concomitant]
     Active Substance: MINERAL OIL\PETROLATUM
     Indication: DRY EYE
     Dosage: AS NEEDED
     Route: 065
  14. LASIX [Concomitant]
     Active Substance: FUROSEMIDE
     Indication: OEDEMA
     Dosage: PRN
     Route: 065
  15. BUPROPION [Concomitant]
     Active Substance: BUPROPION
     Indication: DEPRESSION
     Route: 065
  16. MORPHINE [Concomitant]
     Active Substance: MORPHINE
     Indication: PAIN
     Dosage: 1950 MILLIGRAM
     Route: 065
  17. ALPRAZOLAM. [Concomitant]
     Active Substance: ALPRAZOLAM
     Indication: ANXIETY
     Dosage: 1-2 TABLETS AS NEEDED
     Route: 065
  18. LEVOTHYROXINE [Concomitant]
     Active Substance: LEVOTHYROXINE
     Indication: THYROID DISORDER
     Dosage: 1500 MILLIGRAM
     Route: 065
  19. SUDAFED [Concomitant]
     Active Substance: PSEUDOEPHEDRINE HYDROCHLORIDE
     Indication: NASAL CONGESTION
     Dosage: AS NEEDED
     Route: 065
  20. FISH OIL [Concomitant]
     Active Substance: FISH OIL
     Indication: PRODUCT USED FOR UNKNOWN INDICATION
     Route: 065
  21. CALCIUM [Concomitant]
     Active Substance: CALCIUM
     Indication: PRODUCT USED FOR UNKNOWN INDICATION
     Route: 065
  22. BACLOFEN. [Concomitant]
     Active Substance: BACLOFEN
     Indication: MUSCLE SPASMS
     Dosage: AS NEEDED
     Route: 065

REACTIONS (11)
  - Peripheral swelling [Not Recovered/Not Resolved]
  - Nasal congestion [Not Recovered/Not Resolved]
  - Asthma [Not Recovered/Not Resolved]
  - Pain [Not Recovered/Not Resolved]
  - Erythema [Not Recovered/Not Resolved]
  - Constipation [Not Recovered/Not Resolved]
  - Influenza [Not Recovered/Not Resolved]
  - Pain of skin [Not Recovered/Not Resolved]
  - Oedema peripheral [Not Recovered/Not Resolved]
  - Skin swelling [Not Recovered/Not Resolved]
  - Fatigue [Not Recovered/Not Resolved]

NARRATIVE: CASE EVENT DATE: 20141226
